FAERS Safety Report 12891171 (Version 1)
Quarter: 2016Q4

REPORT INFORMATION
  Report Type: Spontaneous
  Country: CA (occurrence: CA)
  Receive Date: 20161027
  Receipt Date: 20161027
  Transmission Date: 20170207
  Serious: Yes (Other)
  Sender: FDA-Public Use
  Company Number: CA-AMGEN-CANSP2016147634

PATIENT
  Age: 70 Year
  Sex: Male
  Weight: 111.5 kg

DRUGS (10)
  1. PLAQUENIL [Concomitant]
     Active Substance: HYDROXYCHLOROQUINE SULFATE
     Dosage: 400 MG, QWK
     Dates: start: 2012
  2. LEFLUNOMIDE. [Suspect]
     Active Substance: LEFLUNOMIDE
     Indication: PRODUCT USED FOR UNKNOWN INDICATION
     Dosage: 20 MG, QD
     Route: 065
     Dates: start: 2012, end: 20130723
  3. METHOTREXATE. [Concomitant]
     Active Substance: METHOTREXATE
     Indication: RHEUMATOID ARTHRITIS
     Dosage: 25 MG, QWK
     Route: 048
     Dates: start: 2012
  4. CANDESARTAN [Concomitant]
     Active Substance: CANDESARTAN
  5. FOLIC ACID. [Concomitant]
     Active Substance: FOLIC ACID
  6. CRESTOR [Concomitant]
     Active Substance: ROSUVASTATIN CALCIUM
  7. ENBREL [Suspect]
     Active Substance: ETANERCEPT
     Indication: RHEUMATOID ARTHRITIS
     Dosage: 50 MG, QWK
     Route: 065
     Dates: start: 2012, end: 20150224
  8. VITAMIN D [Concomitant]
     Active Substance: CHOLECALCIFEROL
  9. INSULIN [Concomitant]
     Active Substance: INSULIN NOS
  10. HUMIRA [Suspect]
     Active Substance: ADALIMUMAB
     Indication: PRODUCT USED FOR UNKNOWN INDICATION
     Dosage: 40 MG, 2 TIMES/WK
     Route: 065
     Dates: start: 201507, end: 20160512

REACTIONS (4)
  - Abdominal discomfort [Unknown]
  - Rheumatoid arthritis [Unknown]
  - Diarrhoea [Unknown]
  - Drug hypersensitivity [Unknown]
